FAERS Safety Report 11981463 (Version 2)
Quarter: 2016Q1

REPORT INFORMATION
  Report Type: Spontaneous
  Country: US (occurrence: US)
  Receive Date: 20160130
  Receipt Date: 20160222
  Transmission Date: 20160526
  Serious: No
  Sender: FDA-Public Use
  Company Number: PHEH2016US002375

PATIENT
  Age: 59 Year
  Sex: Male

DRUGS (1)
  1. VOTRIENT [Suspect]
     Active Substance: PAZOPANIB HYDROCHLORIDE
     Indication: RENAL NEOPLASM
     Dosage: 800 MG, QD
     Route: 048
     Dates: start: 20160115

REACTIONS (5)
  - Weight decreased [Unknown]
  - Bone pain [Unknown]
  - Fatigue [Unknown]
  - Communication disorder [Unknown]
  - Dyspnoea [Unknown]

NARRATIVE: CASE EVENT DATE: 20160126
